FAERS Safety Report 4994343-0 (Version None)
Quarter: 2006Q2

REPORT INFORMATION
  Report Type: 
  Country: None (occurrence: None)
  Receive Date: 20060503
  Receipt Date: 20060424
  Transmission Date: 20061013
  Serious: No
  Sender: FDA-Public Use
  Company Number: US016820

PATIENT
  Age: 62 Year
  Sex: Male

DRUGS (5)
  1. MODAFINILO [Suspect]
     Indication: CATAPLEXY
     Dates: end: 20020101
  2. MODAFINILO [Suspect]
     Indication: NARCOLEPSY
     Dates: end: 20020101
  3. MODAFINILO [Suspect]
     Indication: CATAPLEXY
  4. MODAFINILO [Suspect]
     Indication: NARCOLEPSY
  5. REBOXETINE [Concomitant]

REACTIONS (2)
  - CATAPLEXY [None]
  - CONDITION AGGRAVATED [None]
